FAERS Safety Report 5750194-0 (Version None)
Quarter: 2008Q2

REPORT INFORMATION
  Report Type: 
  Country: None (occurrence: None)
  Receive Date: 20080527
  Receipt Date: 20080516
  Transmission Date: 20081010
  Serious: Yes (Hospitalization)
  Sender: FDA-Public Use
  Company Number: FR-PFIZER INC-2008042728

PATIENT
  Sex: Male

DRUGS (5)
  1. ZOLOFT [Suspect]
     Indication: DEPRESSION
     Route: 048
  2. SERETIDE [Concomitant]
  3. NIDREL [Concomitant]
     Route: 048
  4. VASTAREL [Concomitant]
     Route: 048
  5. IRBESARTAN [Concomitant]
     Route: 048

REACTIONS (3)
  - DISORIENTATION [None]
  - HALLUCINATION [None]
  - NIGHTMARE [None]
